FAERS Safety Report 7024298-9 (Version None)
Quarter: 2010Q4

REPORT INFORMATION
  Report Type: 
  Country: None (occurrence: None)
  Receive Date: 20101001
  Receipt Date: 20100922
  Transmission Date: 20110411
  Serious: Yes (Hospitalization)
  Sender: FDA-Public Use
  Company Number: FR-ASTRAZENECA-2010SE45020

PATIENT
  Age: 24216 Day
  Sex: Male

DRUGS (12)
  1. MOPRAL [Suspect]
     Route: 048
  2. HYPNOVEL [Suspect]
     Route: 042
     Dates: start: 20100707, end: 20100707
  3. SPASFON [Suspect]
     Route: 065
     Dates: start: 20100707, end: 20100707
  4. PERFALGAN [Suspect]
     Route: 042
     Dates: start: 20100707, end: 20100707
  5. PRETERAX [Suspect]
     Dosage: 2 MG/ 0.625 MG
     Route: 048
     Dates: start: 20090101
  6. KEPPRA [Suspect]
     Route: 048
  7. TRILEPTAL [Suspect]
     Route: 048
  8. MIANSERINE [Suspect]
     Route: 048
  9. TAMSULOSINE [Suspect]
     Route: 048
  10. AMISULPRIDE [Suspect]
     Route: 048
  11. SERTALINE [Suspect]
     Route: 048
  12. EQUANIL [Suspect]
     Route: 048

REACTIONS (4)
  - FACE OEDEMA [None]
  - LIP OEDEMA [None]
  - PALATAL OEDEMA [None]
  - TACHYCARDIA [None]
